FAERS Safety Report 11243433 (Version 1)
Quarter: 2015Q3

REPORT INFORMATION
  Report Type: Spontaneous
  Country: US (occurrence: None)
  Receive Date: 20150706
  Receipt Date: 20150706
  Transmission Date: 20151125
  Serious: Yes (Other)
  Sender: FDA-Public Use
  Company Number: None

PATIENT
  Age: 88 Year

DRUGS (4)
  1. OMEPRAZOLE. [Concomitant]
     Active Substance: OMEPRAZOLE
  2. LUPRON DEPOT [Suspect]
     Active Substance: LEUPROLIDE ACETATE
     Indication: PROSTATE CANCER
     Dosage: Q 3 MOS
     Route: 058
     Dates: start: 20141010, end: 20150422
  3. ATROVASTATIN [Concomitant]
     Active Substance: ATORVASTATIN CALCIUM
  4. ADAVIR DISKU 250/50 [Concomitant]

REACTIONS (1)
  - Chromaturia [None]

NARRATIVE: CASE EVENT DATE: 20150702
